FAERS Safety Report 8078430-9 (Version None)
Quarter: 2012Q1

REPORT INFORMATION
  Report Type: 
  Country: None (occurrence: None)
  Receive Date: 20120123
  Receipt Date: 20120109
  Transmission Date: 20120608
  Serious: Yes (Hospitalization)
  Sender: FDA-Public Use
  Company Number: UTC-011443

PATIENT
  Age: 72 Year
  Sex: Female
  Weight: 55 kg

DRUGS (8)
  1. REMODULIN [Suspect]
  2. OXYGEN (OXYGEN) [Concomitant]
  3. DIURETICS (DIURETICS) [Concomitant]
  4. ADCIRCA (TADAALFIL) [Concomitant]
  5. REMODULIN [Suspect]
     Indication: COR PULMONALE CHRONIC
     Dosage: 202.32 UG/KG (0.1405 UG/KG,1 IN 1 MIN),SUBCUTANEOUS
     Route: 058
     Dates: start: 20061012
  6. LETAIRIS [Concomitant]
  7. ASPIRIN [Concomitant]
  8. PLAVIX [Concomitant]

REACTIONS (2)
  - INFUSION SITE HAEMATOMA [None]
  - INFUSION SITE INFECTION [None]
